FAERS Safety Report 19972147 (Version 1)
Quarter: 2021Q4

REPORT INFORMATION
  Report Type: Spontaneous
  Country: TW (occurrence: TW)
  Receive Date: 20211020
  Receipt Date: 20211020
  Transmission Date: 20220303
  Serious: Yes (Hospitalization, Other)
  Sender: FDA-Public Use
  Company Number: TW-002147023-NVSC2021TW229980

PATIENT

DRUGS (10)
  1. RUXOLITINIB [Suspect]
     Active Substance: RUXOLITINIB
     Indication: Myelofibrosis
     Dosage: 40 MG (20 MG, 2 IN 1 D)
     Route: 048
     Dates: start: 20210914, end: 20210927
  2. NAVITOCLAX [Suspect]
     Active Substance: NAVITOCLAX
     Indication: Myelofibrosis
     Dosage: 200 MG, QD
     Route: 048
     Dates: start: 20210914, end: 20210927
  3. ZOLNOX [ZOLMITRIPTAN] [Concomitant]
     Indication: Insomnia
     Dosage: 10 MG, QD
     Route: 048
     Dates: start: 20210909
  4. ESPIN [AMLODIPINE BESILATE] [Concomitant]
     Indication: Myocardial infarction
     Dosage: 100 MG, QD
     Route: 065
     Dates: start: 20210909
  5. ESPIN [AMLODIPINE BESILATE] [Concomitant]
     Indication: Embolism
  6. THROUGH [Concomitant]
     Indication: Constipation
     Dosage: 24 MG, QD
     Route: 048
     Dates: start: 20210909
  7. FEBUXOSTAT [Concomitant]
     Active Substance: FEBUXOSTAT
     Indication: Gout
     Dosage: 80 MG, QD
     Route: 048
     Dates: start: 20210909
  8. MICARDIS [Concomitant]
     Active Substance: TELMISARTAN
     Indication: Disease risk factor
     Dosage: 80 MG, QD
     Route: 048
     Dates: start: 20210909
  9. FLUR DI FEN [Concomitant]
     Indication: Pain in extremity
     Dosage: 40 MG (1 AS REQUIRED)
     Route: 061
     Dates: start: 20210909
  10. ATORVASTATIN [Concomitant]
     Active Substance: ATORVASTATIN
     Indication: Hyperlipidaemia
     Dosage: 20 MG (1 IN 1 EVERY OTHER DAY)
     Route: 048
     Dates: start: 20210909

REACTIONS (1)
  - Hyperkalaemia [Recovered/Resolved]

NARRATIVE: CASE EVENT DATE: 20210928
